FAERS Safety Report 17687959 (Version 1)
Quarter: 2020Q2

REPORT INFORMATION
  Report Type: Spontaneous
  Country: CN (occurrence: CN)
  Receive Date: 20200421
  Receipt Date: 20200421
  Transmission Date: 20200714
  Serious: Yes (Other)
  Sender: FDA-Public Use
  Company Number: CN-ROCHE-2581688

PATIENT
  Age: 49 Year
  Sex: Female
  Weight: 35 kg

DRUGS (9)
  1. XELODA [Concomitant]
     Active Substance: CAPECITABINE
     Indication: BREAST CANCER
     Route: 048
     Dates: start: 20180604
  2. XELODA [Concomitant]
     Active Substance: CAPECITABINE
     Route: 048
     Dates: start: 201905
  3. HERCEPTIN [Suspect]
     Active Substance: TRASTUZUMAB
     Dosage: INITIAL 4 MG/KG, THEN 2 MG/KG
     Route: 065
     Dates: start: 20180604
  4. HERCEPTIN [Suspect]
     Active Substance: TRASTUZUMAB
     Route: 065
     Dates: start: 20181103
  5. XELODA [Concomitant]
     Active Substance: CAPECITABINE
     Route: 048
     Dates: start: 20181103
  6. HERCEPTIN [Suspect]
     Active Substance: TRASTUZUMAB
     Indication: BREAST CANCER
     Dosage: INITIAL 4 MG/KG, THEN 2 MG/KG
     Route: 065
     Dates: start: 20180505
  7. PACLITAXEL LIPOSOME [Concomitant]
     Active Substance: PACLITAXEL
     Indication: BREAST CANCER
     Dosage: DAY 1, 8, 15, ONCE PER 4 WEEKS
     Route: 065
     Dates: start: 20180505
  8. PACLITAXEL LIPOSOME [Concomitant]
     Active Substance: PACLITAXEL
     Route: 065
     Dates: start: 20180604
  9. LAPATINIB [Concomitant]
     Active Substance: LAPATINIB
     Indication: BREAST CANCER
     Route: 065
     Dates: start: 201905

REACTIONS (2)
  - Gastrointestinal disorder [Unknown]
  - Bone marrow failure [Unknown]
